FAERS Safety Report 7437659-0 (Version None)
Quarter: 2011Q2

REPORT INFORMATION
  Report Type: 
  Country: None (occurrence: None)
  Receive Date: 20110426
  Receipt Date: 20110419
  Transmission Date: 20111010
  Serious: Yes (Other)
  Sender: FDA-Public Use
  Company Number: ES-AMGEN-ESPSP2011017117

PATIENT
  Age: 62 Year
  Sex: Male
  Weight: 96 kg

DRUGS (3)
  1. DEXAMETHASONE [Concomitant]
     Dosage: 20 MG, UNK
     Route: 042
     Dates: start: 20110329, end: 20110329
  2. ONDASETRON                         /00955301/ [Concomitant]
     Dosage: 8 MG, UNK
     Route: 042
     Dates: start: 20110329, end: 20110329
  3. VECTIBIX [Suspect]
     Indication: COLON CANCER METASTATIC
     Dosage: 550 MG, UNK
     Route: 042
     Dates: start: 20110329, end: 20110329

REACTIONS (4)
  - HYPERHIDROSIS [None]
  - INFUSION RELATED REACTION [None]
  - DYSPNOEA [None]
  - RASH ERYTHEMATOUS [None]
